FAERS Safety Report 16171595 (Version 3)
Quarter: 2019Q3

REPORT INFORMATION
  Report Type: Spontaneous
  Country: CA (occurrence: CA)
  Receive Date: 20190408
  Receipt Date: 20190712
  Transmission Date: 20191004
  Serious: Yes (Hospitalization, Other)
  Sender: FDA-Public Use
  Company Number: CA-ACTELION-A-US2019-188615

PATIENT
  Age: 75 Year
  Sex: Female

DRUGS (14)
  1. TRACLEER [Suspect]
     Active Substance: BOSENTAN
     Indication: PULMONARY ARTERIAL HYPERTENSION
     Dosage: 125 MG
     Route: 048
     Dates: start: 20190119
  2. ATORVASTATIN [Concomitant]
     Active Substance: ATORVASTATIN
  3. ACETYLSALICYLIC ACID [Concomitant]
     Active Substance: ASPIRIN
     Dosage: 81 MG
  4. COQ10 [Concomitant]
     Active Substance: UBIDECARENONE
  5. VITAMIN D [Concomitant]
     Active Substance: VITAMIN D NOS
  6. ADCIRCA [Concomitant]
     Active Substance: TADALAFIL
  7. ESCITALOPRAM [Concomitant]
     Active Substance: ESCITALOPRAM OXALATE
  8. SYNTHROID [Concomitant]
     Active Substance: LEVOTHYROXINE SODIUM
  9. FUROSEMIDE. [Concomitant]
     Active Substance: FUROSEMIDE
  10. FRAGMIN [Concomitant]
     Active Substance: DALTEPARIN SODIUM
  11. TEVA EZETIMIBE [Concomitant]
  12. SALBUTAMOL [Concomitant]
     Active Substance: ALBUTEROL
  13. RABEPRAZOLE [Concomitant]
     Active Substance: RABEPRAZOLE
  14. VITAMIN B12 [Concomitant]
     Active Substance: CYANOCOBALAMIN

REACTIONS (3)
  - Eye infection [Recovering/Resolving]
  - Lymphoma [Unknown]
  - Pneumonia fungal [Recovering/Resolving]

NARRATIVE: CASE EVENT DATE: 20190326
